FAERS Safety Report 7202685-3 (Version None)
Quarter: 2010Q4

REPORT INFORMATION
  Report Type: 
  Country: None (occurrence: None)
  Receive Date: 20101229
  Receipt Date: 20101217
  Transmission Date: 20110411
  Serious: Yes (Hospitalization)
  Sender: FDA-Public Use
  Company Number: JP-ACTELION-A-CH2010-42894

PATIENT
  Sex: Female
  Weight: 61 kg

DRUGS (6)
  1. BOSENTAN TABLET 62.5 MG JPN [Suspect]
     Indication: PULMONARY ARTERIAL HYPERTENSION
     Dosage: 250 MG, BID
     Route: 048
     Dates: start: 20100519, end: 20100712
  2. BOSENTAN TABLET 62.5 MG JPN [Suspect]
     Dosage: 62.5 MG, BID
     Route: 048
     Dates: start: 20100510, end: 20100511
  3. BOSENTAN TABLET 62.5 MG JPN [Suspect]
     Dosage: 125 MG, BID
     Route: 048
     Dates: start: 20100512, end: 20100518
  4. FAMOTIDINE [Concomitant]
  5. PREDNISOLONE [Concomitant]
  6. AMLODIPINE [Concomitant]

REACTIONS (1)
  - HEPATIC FUNCTION ABNORMAL [None]
